FAERS Safety Report 18574756 (Version 1)
Quarter: 2020Q4

REPORT INFORMATION
  Report Type: Spontaneous
  Country: US (occurrence: US)
  Receive Date: 20201203
  Receipt Date: 20201203
  Transmission Date: 20210114
  Serious: Yes (Other)
  Sender: FDA-Public Use
  Company Number: US-INTRA-CELLULAR THERAPIES, INC.-2020ICT00245

PATIENT

DRUGS (4)
  1. UNSPECIFIED TRICYCLIC ANTI-DEPRESSANT [Concomitant]
  2. UNSPECIFIED SSRI [Concomitant]
     Active Substance: UNSPECIFIED INGREDIENT
  3. OLANZAPINE. [Concomitant]
     Active Substance: OLANZAPINE
  4. CAPLYTA [Suspect]
     Active Substance: LUMATEPERONE

REACTIONS (2)
  - Depression [Unknown]
  - Hallucination, auditory [Unknown]
